FAERS Safety Report 9280866 (Version 1)
Quarter: 2013Q2

REPORT INFORMATION
  Report Type: Spontaneous
  Country: US (occurrence: None)
  Receive Date: 20130502
  Receipt Date: 20130502
  Transmission Date: 20140414
  Serious: No
  Sender: FDA-Public Use
  Company Number: LIT-13-0005

PATIENT
  Age: 15 Year
  Sex: Male

DRUGS (1)
  1. LEVETIRACETAM [Suspect]
     Indication: CONVULSION
     Dosage: 15MG/KG BODY WEIGHT/DAY

REACTIONS (5)
  - Drug interaction [None]
  - Vomiting [None]
  - Renal failure [None]
  - Blood pressure increased [None]
  - Drug level increased [None]
